FAERS Safety Report 10262395 (Version 1)
Quarter: 2014Q2

REPORT INFORMATION
  Report Type: Spontaneous
  Country: FR (occurrence: FR)
  Receive Date: 20140626
  Receipt Date: 20140626
  Transmission Date: 20141212
  Serious: Yes (Hospitalization)
  Sender: FDA-Public Use
  Company Number: FR-JNJFOC-20140612350

PATIENT
  Age: 41 Year
  Sex: Male

DRUGS (2)
  1. XEPLION [Suspect]
     Indication: SCHIZOPHRENIA
     Route: 030
     Dates: start: 20140427
  2. XEPLION [Suspect]
     Indication: SCHIZOPHRENIA
     Route: 030
     Dates: start: 20140430

REACTIONS (4)
  - Malaise [Recovered/Resolved]
  - Muscle rigidity [Recovered/Resolved]
  - Inappropriate schedule of drug administration [Unknown]
  - Extrapyramidal disorder [Recovered/Resolved]
